FAERS Safety Report 5024443-0 (Version None)
Quarter: 2006Q2

REPORT INFORMATION
  Report Type: 
  Country: None (occurrence: None)
  Receive Date: 20060607
  Receipt Date: 20060529
  Transmission Date: 20061013
  Serious: Yes (Hospitalization)
  Sender: FDA-Public Use
  Company Number: 2006068412

PATIENT
  Age: 78 Year
  Sex: Male

DRUGS (4)
  1. SPIRONOLACTONE [Suspect]
     Indication: OEDEMA
     Dosage: 150 MG (150 MG), ORAL
     Route: 048
     Dates: start: 20051213, end: 20060314
  2. FUROSEMIDE [Suspect]
     Indication: OEDEMA
     Dosage: 20 MG (20 MG), ORAL
     Route: 048
     Dates: start: 20051213, end: 20060314
  3. GABAPENTIN [Concomitant]
  4. NALTREXONE [Concomitant]

REACTIONS (7)
  - ALANINE AMINOTRANSFERASE INCREASED [None]
  - ASPARTATE AMINOTRANSFERASE INCREASED [None]
  - BLOOD BILIRUBIN INCREASED [None]
  - BLOOD CREATININE INCREASED [None]
  - BLOOD UREA INCREASED [None]
  - DRUG INTERACTION [None]
  - ENCEPHALOPATHY [None]
